FAERS Safety Report 16629427 (Version 2)
Quarter: 2019Q3

REPORT INFORMATION
  Report Type: Spontaneous
  Country: US (occurrence: US)
  Receive Date: 20190725
  Receipt Date: 20190911
  Transmission Date: 20191004
  Serious: Yes (Other)
  Sender: FDA-Public Use
  Company Number: US-BAYER-2019-134908

PATIENT
  Age: 4 Decade
  Sex: Female
  Weight: 98.41 kg

DRUGS (2)
  1. SKYLA [Suspect]
     Active Substance: LEVONORGESTREL
     Indication: CONTRACEPTION
     Dosage: 14 MCG/24HR, CONT
     Route: 015
     Dates: start: 20171129
  2. SKYLA [Suspect]
     Active Substance: LEVONORGESTREL
     Indication: HAEMORRHAGE

REACTIONS (4)
  - Uterine leiomyoma [None]
  - Blood loss anaemia [None]
  - Dysmenorrhoea [None]
  - Menorrhagia [None]
